FAERS Safety Report 10589914 (Version 3)
Quarter: 2015Q1

REPORT INFORMATION
  Report Type: Spontaneous
  Country: US (occurrence: US)
  Receive Date: 20141118
  Receipt Date: 20150130
  Transmission Date: 20150720
  Serious: Yes (Other)
  Sender: FDA-Public Use
  Company Number: US-JNJFOC-20141100601

PATIENT
  Age: 14 Year
  Sex: Male

DRUGS (3)
  1. LISDEXAMFETAMINE DIMESYLATE [Suspect]
     Active Substance: LISDEXAMFETAMINE DIMESYLATE
     Indication: ASPERGER^S DISORDER
     Route: 048
     Dates: end: 2013
  2. RISPERDAL [Suspect]
     Active Substance: RISPERIDONE
     Indication: ATTENTION DEFICIT/HYPERACTIVITY DISORDER
     Route: 048
     Dates: start: 2007, end: 2007
  3. LISDEXAMFETAMINE DIMESYLATE [Suspect]
     Active Substance: LISDEXAMFETAMINE DIMESYLATE
     Indication: ASPERGER^S DISORDER
     Route: 048
     Dates: start: 2008, end: 2011

REACTIONS (4)
  - Obesity [Recovering/Resolving]
  - Major depression [Recovering/Resolving]
  - Gynaecomastia [Unknown]
  - Product use issue [Unknown]

NARRATIVE: CASE EVENT DATE: 20110314
